FAERS Safety Report 21768398 (Version 2)
Quarter: 2023Q1

REPORT INFORMATION
  Report Type: Spontaneous
  Country: TR (occurrence: TR)
  Receive Date: 20221222
  Receipt Date: 20230102
  Transmission Date: 20230418
  Serious: Yes (Hospitalization)
  Sender: FDA-Public Use
  Company Number: TR-TEVA-2022-TR-2838417

PATIENT
  Age: 6 Month
  Sex: Male

DRUGS (6)
  1. METHOTREXATE [Suspect]
     Active Substance: METHOTREXATE
     Indication: Familial haemophagocytic lymphohistiocytosis
     Dosage: HLH-2004 CHEMOTHERAPY REGIMEN
     Route: 065
  2. ETOPOSIDE [Suspect]
     Active Substance: ETOPOSIDE
     Indication: Familial haemophagocytic lymphohistiocytosis
     Dosage: HLH-2004 CHEMOTHERAPY REGIMEN
     Route: 065
  3. DEXAMETHASONE [Suspect]
     Active Substance: DEXAMETHASONE
     Indication: Familial haemophagocytic lymphohistiocytosis
     Dosage: HLH-2004 CHEMOTHERAPY REGIMEN
     Route: 065
  4. CYCLOSPORINE [Suspect]
     Active Substance: CYCLOSPORINE
     Indication: Familial haemophagocytic lymphohistiocytosis
     Dosage: HLH-2004 CHEMOTHERAPY REGIMEN
     Route: 065
  5. PREDNISOLONE [Suspect]
     Active Substance: PREDNISOLONE
     Indication: Familial haemophagocytic lymphohistiocytosis
     Dosage: HLH-2004 CHEMOTHERAPY REGIMEN
     Route: 065
  6. Immunoglobulin [Concomitant]
     Indication: Evidence based treatment
     Route: 042

REACTIONS (1)
  - COVID-19 pneumonia [Recovered/Resolved]
